FAERS Safety Report 7134278-0 (Version None)
Quarter: 2010Q4

REPORT INFORMATION
  Report Type: 
  Country: None (occurrence: None)
  Receive Date: 20101203
  Receipt Date: 20101124
  Transmission Date: 20110411
  Serious: Yes (Disabling)
  Sender: FDA-Public Use
  Company Number: CH-ASTRAZENECA-2010SE56213

PATIENT
  Age: 71 Year
  Sex: Male
  Weight: 56 kg

DRUGS (18)
  1. NEXIUM [Suspect]
     Route: 048
     Dates: start: 20070101
  2. ZOMETA [Suspect]
     Indication: MULTIPLE MYELOMA
     Route: 041
     Dates: start: 20061101
  3. MELPHALAN [Suspect]
     Indication: MULTIPLE MYELOMA
     Dosage: CYCLIC
     Route: 041
     Dates: start: 20080101, end: 20080701
  4. PREDNISONE [Suspect]
     Indication: MULTIPLE MYELOMA
     Dosage: CYCLIC
     Dates: start: 20080101, end: 20080701
  5. REVLIMID [Suspect]
     Indication: MULTIPLE MYELOMA
     Dosage: 25 MG CYCLIC
     Route: 048
     Dates: start: 20090414, end: 20090506
  6. DEXAMETHASONE [Suspect]
     Indication: MULTIPLE MYELOMA
     Dosage: 20 MG CYCLIC
     Route: 048
     Dates: start: 20090414, end: 20091112
  7. VELCADE [Suspect]
     Indication: MULTIPLE MYELOMA
     Dosage: 1.3 MG/M2 CYCLIC
     Route: 041
     Dates: start: 20090526, end: 20091112
  8. ASPIRINE BAYER [Concomitant]
     Route: 048
  9. SIMVASTATIN [Concomitant]
     Route: 048
  10. DISTRANEURIN [Concomitant]
  11. EFFEXOR [Concomitant]
     Route: 048
  12. KEPPRA [Concomitant]
     Route: 048
  13. STILNOX [Concomitant]
     Route: 048
  14. DAFALGAN [Concomitant]
     Route: 048
  15. OXYNORM [Concomitant]
     Route: 048
  16. FOLIC ACID [Concomitant]
     Route: 048
  17. IMPORTAL [Concomitant]
     Route: 048
  18. DERMOVATE [Concomitant]
     Route: 061

REACTIONS (1)
  - OSTEOMYELITIS [None]
